FAERS Safety Report 8581646-6 (Version None)
Quarter: 2012Q3

REPORT INFORMATION
  Report Type: 
  Country: None (occurrence: None)
  Receive Date: 20120727
  Receipt Date: 20120718
  Transmission Date: 20120928
  Serious: Yes (Other)
  Sender: FDA-Public Use
  Company Number: DKLU1083296

PATIENT
  Age: 18 Year
  Sex: Female

DRUGS (5)
  1. DEPAKOTE [Concomitant]
  2. KEPPRA [Concomitant]
  3. LAMICTAL [Concomitant]
  4. ONFI [Suspect]
     Indication: PRODUCT USED FOR UNKNOWN INDICATION
     Dosage: 20 MG MILLIGRAM(S), 1 IN 1 D
  5. ZARONTIN [Concomitant]

REACTIONS (4)
  - ATAXIA [None]
  - FALL [None]
  - LACERATION [None]
  - ANTICONVULSANT DRUG LEVEL INCREASED [None]
